FAERS Safety Report 20625007 (Version 1)
Quarter: 2022Q1

REPORT INFORMATION
  Report Type: Report from Study
  Country: BR (occurrence: BR)
  Receive Date: 20220323
  Receipt Date: 20220323
  Transmission Date: 20220424
  Serious: Yes (Other)
  Sender: FDA-Public Use
  Company Number: BR-NOVARTISPH-NVSC2022BR063631

PATIENT
  Age: 52 Year
  Sex: Female

DRUGS (1)
  1. ANASTROZOLE [Suspect]
     Active Substance: ANASTROZOLE
     Indication: Breast cancer
     Dosage: UNK
     Route: 065
     Dates: start: 2014

REACTIONS (9)
  - Metastases to liver [Unknown]
  - Haemorrhage [Recovered/Resolved]
  - Osteoporosis [Unknown]
  - Osteopenia [Unknown]
  - Constipation [Unknown]
  - Menstrual disorder [Unknown]
  - Blood cholesterol abnormal [Unknown]
  - Functional gastrointestinal disorder [Unknown]
  - Muscle spasms [Unknown]

NARRATIVE: CASE EVENT DATE: 20210401
